FAERS Safety Report 8545874 (Version 2)
Quarter: 2012Q4

REPORT INFORMATION
  Report Type: 
  Country: US (occurrence: US)
  Receive Date: 20120504
  Receipt Date: 20120912
  Transmission Date: 20130627
  Serious: No
  Sender: FDA-Public Use
  Company Number: US-BIOGENIDEC-2012BI014331

PATIENT
  Age: 48 Year
  Sex: Female

DRUGS (1)
  1. TYSABRI [Suspect]
     Indication: MULTIPLE SCLEROSIS
     Route: 042
     Dates: start: 20120305

REACTIONS (4)
  - Acne [Not Recovered/Not Resolved]
  - Vascular rupture [Recovered/Resolved]
  - Asthenia [Recovered/Resolved]
  - Infusion site bruising [Recovered/Resolved]
